FAERS Safety Report 17228390 (Version 1)
Quarter: 2020Q1

REPORT INFORMATION
  Report Type: Spontaneous
  Country: FR (occurrence: FR)
  Receive Date: 20200103
  Receipt Date: 20200103
  Transmission Date: 20200409
  Serious: Yes (Hospitalization, Congenital Anomaly)
  Sender: FDA-Public Use
  Company Number: FR-ROCHE-2506102

PATIENT
  Sex: Male

DRUGS (2)
  1. DEPAKINE CHRONO [Suspect]
     Active Substance: VALPROATE SODIUM
     Indication: PRODUCT USED FOR UNKNOWN INDICATION
     Route: 064
     Dates: start: 20000314, end: 20001107
  2. CLONAZEPAM. [Suspect]
     Active Substance: CLONAZEPAM
     Indication: PRODUCT USED FOR UNKNOWN INDICATION
     Route: 064
     Dates: start: 20000314, end: 20001107

REACTIONS (35)
  - Macrocephaly [Not Recovered/Not Resolved]
  - Mental disorder [Not Recovered/Not Resolved]
  - Language disorder [Unknown]
  - Foetal growth restriction [Unknown]
  - Behaviour disorder [Not Recovered/Not Resolved]
  - Developmental delay [Not Recovered/Not Resolved]
  - Ear infection [Unknown]
  - Psychomotor hyperactivity [Not Recovered/Not Resolved]
  - Hypoacusis [Unknown]
  - Aggression [Unknown]
  - Echopraxia [Unknown]
  - Speech disorder developmental [Unknown]
  - Cognitive disorder [Unknown]
  - Urinary incontinence [Unknown]
  - Disturbance in social behaviour [Unknown]
  - Agitation [Unknown]
  - Gait disturbance [Unknown]
  - Drooling [Unknown]
  - Seizure [Unknown]
  - Fine motor skill dysfunction [Unknown]
  - Adenoidal hypertrophy [Unknown]
  - Anxiety disorder [Unknown]
  - Agraphia [Unknown]
  - Laryngitis [Unknown]
  - Fatigue [Not Recovered/Not Resolved]
  - Encopresis [Unknown]
  - Foetal exposure during pregnancy [Unknown]
  - Intellectual disability [Not Recovered/Not Resolved]
  - Psychomotor skills impaired [Not Recovered/Not Resolved]
  - Headache [Unknown]
  - Disturbance in attention [Not Recovered/Not Resolved]
  - Nasopharyngitis [Unknown]
  - Deafness [Unknown]
  - Balance disorder [Unknown]
  - Depressed level of consciousness [Unknown]

NARRATIVE: CASE EVENT DATE: 2004
